FAERS Safety Report 6031787-2 (Version None)
Quarter: 2009Q1

REPORT INFORMATION
  Report Type: 
  Country: None (occurrence: None)
  Receive Date: 20090107
  Receipt Date: 20090107
  Transmission Date: 20090719
  Serious: Yes (Other)
  Sender: FDA-Public Use
  Company Number: None

PATIENT
  Age: 12 Year
  Sex: Male
  Weight: 33.1126 kg

DRUGS (2)
  1. KEPPRA [Suspect]
     Dosage: 500 MG 1 1/2 TABS BID PO
     Route: 048
  2. DILANTIN [Concomitant]

REACTIONS (3)
  - CONVULSION [None]
  - HEAD BANGING [None]
  - THERAPEUTIC RESPONSE UNEXPECTED WITH DRUG SUBSTITUTION [None]
